FAERS Safety Report 14249764 (Version 1)
Quarter: 2017Q4

REPORT INFORMATION
  Report Type: Spontaneous
  Country: BR (occurrence: BR)
  Receive Date: 20171205
  Receipt Date: 20171205
  Transmission Date: 20180321
  Serious: Yes (Other)
  Sender: FDA-Public Use
  Company Number: BR-ROCHE-2030329

PATIENT
  Sex: Male

DRUGS (1)
  1. RIVOTRIL [Suspect]
     Active Substance: CLONAZEPAM
     Indication: SLEEP DISORDER THERAPY
     Route: 060

REACTIONS (14)
  - Dyskinesia [Unknown]
  - Rhinitis [Unknown]
  - Hallucination [Unknown]
  - Nightmare [Unknown]
  - Insomnia [Unknown]
  - Drug administration error [Unknown]
  - Sinusitis [Unknown]
  - Product use in unapproved indication [Unknown]
  - Off label use [Unknown]
  - Coordination abnormal [Unknown]
  - Myalgia [Unknown]
  - Dry mouth [Unknown]
  - Influenza [Unknown]
  - Decreased appetite [Unknown]
